FAERS Safety Report 5683624-3 (Version None)
Quarter: 2008Q1

REPORT INFORMATION
  Report Type: 
  Country: None (occurrence: None)
  Receive Date: 20080328
  Receipt Date: 20061207
  Transmission Date: 20080703
  Serious: No
  Sender: FDA-Public Use
  Company Number: US-BAYER-US-2005-026328

PATIENT
  Age: 33 Year
  Sex: Female

DRUGS (1)
  1. MIRENA [Suspect]
     Indication: CONTRACEPTION
     Route: 015
     Dates: start: 20020101

REACTIONS (3)
  - COMPLICATION OF DEVICE REMOVAL [None]
  - INFLUENZA LIKE ILLNESS [None]
  - PREGNANCY WITH CONTRACEPTIVE DEVICE [None]
